FAERS Safety Report 12072680 (Version 1)
Quarter: 2016Q1

REPORT INFORMATION
  Report Type: Spontaneous
  Country: US (occurrence: US)
  Receive Date: 20160212
  Receipt Date: 20160212
  Transmission Date: 20160526
  Serious: No
  Sender: FDA-Public Use
  Company Number: US-TEVA-612906USA

PATIENT
  Sex: Male

DRUGS (1)
  1. ARIPIPRAZOLE. [Suspect]
     Active Substance: ARIPIPRAZOLE
     Indication: AUTISM SPECTRUM DISORDER
     Route: 065

REACTIONS (7)
  - Drug ineffective [Unknown]
  - Disturbance in attention [Unknown]
  - Adverse event [Unknown]
  - Product substitution issue [Unknown]
  - Aggression [Unknown]
  - Agitation [Not Recovered/Not Resolved]
  - Anger [Unknown]
